FAERS Safety Report 5770672-8 (Version None)
Quarter: 2008Q2

REPORT INFORMATION
  Report Type: 
  Country: None (occurrence: None)
  Receive Date: 20080613
  Receipt Date: 20080509
  Transmission Date: 20081010
  Serious: No
  Sender: FDA-Public Use
  Company Number: US-ABBOTT-08P-163-0451232-00

PATIENT
  Sex: Female
  Weight: 81.266 kg

DRUGS (3)
  1. HUMIRA [Suspect]
     Indication: CROHN'S DISEASE
     Route: 058
     Dates: start: 20071101
  2. METHOTREXATE [Concomitant]
     Indication: CROHN'S DISEASE
  3. ESOMEPRAZOLE MAGNESIUM [Concomitant]
     Indication: DRUG USE FOR UNKNOWN INDICATION

REACTIONS (3)
  - ABDOMINAL DISTENSION [None]
  - CROHN'S DISEASE [None]
  - MUSCLE SPASMS [None]
